FAERS Safety Report 6059344-2 (Version None)
Quarter: 2009Q1

REPORT INFORMATION
  Report Type: 
  Country: None (occurrence: None)
  Receive Date: 20090130
  Receipt Date: 20090123
  Transmission Date: 20090719
  Serious: Yes (Other)
  Sender: FDA-Public Use
  Company Number: US-JNJFOC-20090107339

PATIENT
  Sex: Male

DRUGS (4)
  1. IBUPROFEN TABLETS [Suspect]
     Route: 048
  2. IBUPROFEN TABLETS [Suspect]
     Indication: PAIN
     Dosage: STARTED IN 2001 OR 2002, TOOK ABOUT 1-2 TIMES/WEEK
     Route: 048
  3. ASPIRIN [Suspect]
     Indication: DRUG USE FOR UNKNOWN INDICATION
  4. LIPITOR [Concomitant]
     Indication: CARDIAC OPERATION

REACTIONS (2)
  - GASTROINTESTINAL ULCER [None]
  - HAEMATOCHEZIA [None]
